FAERS Safety Report 12887750 (Version 1)
Quarter: 2016Q4

REPORT INFORMATION
  Report Type: Spontaneous
  Country: US (occurrence: US)
  Receive Date: 20161027
  Receipt Date: 20161027
  Transmission Date: 20170207
  Serious: No
  Sender: FDA-Public Use
  Company Number: US-009507513-1610USA010369

PATIENT
  Age: 69 Year
  Sex: Male

DRUGS (2)
  1. DULERA [Suspect]
     Active Substance: FORMOTEROL FUMARATE DIHYDRATE\MOMETASONE FUROATE
     Indication: CHRONIC OBSTRUCTIVE PULMONARY DISEASE
     Dosage: STARTED FEW YEARS AGO; DOSE/ FREQUENCY: 200/5 MCG/^2 PUFFS ONCE A DAY^
     Route: 055
  2. PROAIR HFA [Concomitant]
     Active Substance: ALBUTEROL SULFATE

REACTIONS (4)
  - Dyspnoea [Recovered/Resolved]
  - Drug dose omission [Unknown]
  - Product quality issue [Unknown]
  - Inappropriate schedule of drug administration [Unknown]

NARRATIVE: CASE EVENT DATE: 201609
